FAERS Safety Report 6121565-8 (Version None)
Quarter: 2009Q1

REPORT INFORMATION
  Report Type: 
  Country: None (occurrence: None)
  Receive Date: 20090313
  Receipt Date: 20090226
  Transmission Date: 20090719
  Serious: Yes (Hospitalization)
  Sender: FDA-Public Use
  Company Number: DSJ-2009-01046

PATIENT
  Age: 56 Year
  Sex: Male

DRUGS (3)
  1. OLMESARTAN MEDOXOMIL [Suspect]
     Indication: ESSENTIAL HYPERTENSION
     Dosage: 20 MG (20 MG,1 IN 1 D), PER ORAL
     Route: 048
     Dates: start: 20060530, end: 20081015
  2. RENIVACE (ENALAPRIL MALEATE) (ENALAPRIL MALEATE) [Concomitant]
  3. NORVASC [Concomitant]

REACTIONS (2)
  - ABDOMINAL DISTENSION [None]
  - ANGINA PECTORIS [None]
